FAERS Safety Report 4398835-7 (Version None)
Quarter: 2004Q3

REPORT INFORMATION
  Report Type: 
  Country: None (occurrence: None)
  Receive Date: 20040712
  Receipt Date: 20040628
  Transmission Date: 20050211
  Serious: Yes (Death, Hospitalization)
  Sender: FDA-Public Use
  Company Number: 2003176363US

PATIENT
  Age: 47 Year
  Sex: Female
  Weight: 102.9 kg

DRUGS (8)
  1. CELEBREX [Suspect]
     Indication: OSTEOARTHRITIS
     Dates: start: 19990413, end: 20000802
  2. ORUVAIL [Suspect]
     Indication: OSTEOARTHRITIS
  3. ARAVA [Suspect]
     Dates: end: 20000802
  4. PREDNISONE [Concomitant]
  5. DARVOCET-N 100 [Concomitant]
  6. INSULIN HUMULIN-N (INSULIN) [Concomitant]
  7. SERZONE [Concomitant]
  8. MIACALCIN [Concomitant]

REACTIONS (20)
  - ACIDOSIS [None]
  - ANAEMIA [None]
  - BACTERIAL SEPSIS [None]
  - COAGULOPATHY [None]
  - COLITIS ISCHAEMIC [None]
  - DIABETIC NEPHROPATHY [None]
  - DIALYSIS [None]
  - DUODENAL ULCER PERFORATION [None]
  - DYSURIA [None]
  - GASTROINTESTINAL HAEMORRHAGE [None]
  - HYPERTENSION [None]
  - HYPOTENSION [None]
  - NEPHRITIS INTERSTITIAL [None]
  - POSTOPERATIVE INFECTION [None]
  - RENAL FAILURE ACUTE [None]
  - RENAL INTERSTITIAL FIBROSIS [None]
  - SEPSIS [None]
  - THROMBOCYTOPENIA [None]
  - TOXIC EPIDERMAL NECROLYSIS [None]
  - WOUND INFECTION STAPHYLOCOCCAL [None]
